FAERS Safety Report 6829354-3 (Version None)
Quarter: 2010Q3

REPORT INFORMATION
  Report Type: 
  Country: None (occurrence: None)
  Receive Date: 20100709
  Receipt Date: 20070302
  Transmission Date: 20110219
  Serious: Yes (Other)
  Sender: FDA-Public Use
  Company Number: US-PFIZER INC-2007017295

PATIENT
  Sex: Female
  Weight: 95.3 kg

DRUGS (9)
  1. CHANTIX [Suspect]
     Indication: EX-TOBACCO USER
     Dates: start: 20070101
  2. DEPAKOTE [Concomitant]
  3. CELEXA [Concomitant]
  4. NORVASC [Concomitant]
  5. DIOVAN HCT [Concomitant]
  6. ATENOLOL [Concomitant]
  7. ADVAIR DISKUS 100/50 [Concomitant]
  8. MONTELUKAST SODIUM [Concomitant]
  9. AMBIEN [Concomitant]

REACTIONS (2)
  - DEPRESSION [None]
  - DISTURBANCE IN ATTENTION [None]
